FAERS Safety Report 22131021 (Version 1)
Quarter: 2023Q1

REPORT INFORMATION
  Report Type: Report from Study
  Country: CA (occurrence: CA)
  Receive Date: 20230323
  Receipt Date: 20230323
  Transmission Date: 20230418
  Serious: Yes (Other)
  Sender: FDA-Public Use
  Company Number: CA-TAKEDA-2023TUS029309

PATIENT
  Age: 61 Year
  Sex: Male

DRUGS (5)
  1. VEDOLIZUMAB [Suspect]
     Active Substance: VEDOLIZUMAB
     Indication: Colitis ulcerative
     Dosage: 300 MILLIGRAM
     Route: 042
     Dates: start: 20220411
  2. MESALAMINE [Concomitant]
     Active Substance: MESALAMINE
     Dosage: 4.2 MILLIGRAM
     Route: 048
     Dates: start: 2008
  3. PENTASA [Concomitant]
     Active Substance: MESALAMINE
     Dosage: UNK
     Route: 048
     Dates: start: 202110
  4. NEXIUM [Concomitant]
     Active Substance: ESOMEPRAZOLE MAGNESIUM
     Dosage: UNK
  5. CRESTOR [Concomitant]
     Active Substance: ROSUVASTATIN CALCIUM
     Dosage: UNK

REACTIONS (1)
  - Deafness unilateral [Recovering/Resolving]
